FAERS Safety Report 25412173 (Version 1)
Quarter: 2025Q2

REPORT INFORMATION
  Report Type: Report from Study
  Country: EG (occurrence: EG)
  Receive Date: 20250609
  Receipt Date: 20250609
  Transmission Date: 20250717
  Serious: Yes (Death)
  Sender: ROCHE
  Company Number: EG-ROCHE-10000302234

PATIENT
  Sex: Male

DRUGS (1)
  1. MABTHERA [Suspect]
     Active Substance: RITUXIMAB
     Indication: Diffuse large B-cell lymphoma
     Route: 058

REACTIONS (1)
  - Neoplasm [Fatal]

NARRATIVE: CASE EVENT DATE: 20250201
